FAERS Safety Report 10916456 (Version 1)
Quarter: 2015Q1

REPORT INFORMATION
  Report Type: Spontaneous
  Country: GB (occurrence: GB)
  Receive Date: 20150316
  Receipt Date: 20150316
  Transmission Date: 20150721
  Serious: Yes (Hospitalization)
  Sender: FDA-Public Use
  Company Number: GB-WATSON-2015-04766

PATIENT
  Age: 72 Year

DRUGS (2)
  1. ALLOPURINOL (UNKNOWN) [Suspect]
     Active Substance: ALLOPURINOL
     Indication: GOUT
     Dosage: UNK
     Route: 065
  2. MERCAPTOPURINE. [Interacting]
     Active Substance: MERCAPTOPURINE
     Indication: PRODUCT USED FOR UNKNOWN INDICATION
     Dosage: 125MG, UNKNOWN. ~ 1.5MG/KG
     Route: 065
     Dates: start: 20140530

REACTIONS (3)
  - Neutropenic sepsis [Unknown]
  - Pancytopenia [Unknown]
  - Labelled drug-drug interaction medication error [Unknown]
